FAERS Safety Report 16410221 (Version 1)
Quarter: 2019Q2

REPORT INFORMATION
  Report Type: Spontaneous
  Country: FR (occurrence: FR)
  Receive Date: 20190610
  Receipt Date: 20190610
  Transmission Date: 20190711
  Serious: Yes (Hospitalization)
  Sender: FDA-Public Use
  Company Number: FR-JNJFOC-20190605489

PATIENT
  Age: 62 Year
  Sex: Male

DRUGS (5)
  1. ERLEADA [Suspect]
     Active Substance: APALUTAMIDE
     Indication: PROSTATE CANCER
     Route: 065
     Dates: start: 20190407
  2. ALLOPURINOL. [Concomitant]
     Active Substance: ALLOPURINOL
  3. ALDACTAZINE [Concomitant]
     Active Substance: ALTHIAZIDE\SPIRONOLACTONE
  4. COLCHIMAX [COLCHICINE,DICYCLOVERINE HYDROCHLORIDE] [Concomitant]
     Active Substance: COLCHICINE\DICYCLOMINE HYDROCHLORIDE
  5. ENANTONE LP [Concomitant]
     Active Substance: LEUPROLIDE ACETATE

REACTIONS (1)
  - Optic ischaemic neuropathy [Unknown]

NARRATIVE: CASE EVENT DATE: 20190527
